FAERS Safety Report 8877054 (Version 2)
Quarter: 2012Q4

REPORT INFORMATION
  Report Type: 
  Country: US (occurrence: US)
  Receive Date: 20121023
  Receipt Date: 20121204
  Transmission Date: 20130627
  Serious: No
  Sender: FDA-Public Use
  Company Number: US-AMGEN-USASP2012056255

PATIENT
  Age: 53 Year
  Sex: Female

DRUGS (1)
  1. ENBREL [Suspect]
     Indication: PSORIASIS
     Dosage: 50 mg, UNK
     Route: 058
     Dates: start: 20070101

REACTIONS (4)
  - Drug effect incomplete [Not Recovered/Not Resolved]
  - Diarrhoea [Recovered/Resolved]
  - Injection site pain [Unknown]
  - Injection site bruising [Unknown]
